FAERS Safety Report 17005695 (Version 1)
Quarter: 2019Q4

REPORT INFORMATION
  Report Type: Spontaneous
  Country: US (occurrence: US)
  Receive Date: 20190926
  Receipt Date: 20190926
  Transmission Date: 20200122
  Serious: No
  Sender: FDA-Public Use
  Company Number: None

PATIENT
  Age: 59 Year
  Sex: Female
  Weight: 131.54 kg

DRUGS (1)
  1. PREGABALIN. [Suspect]
     Active Substance: PREGABALIN
     Indication: NEURALGIA
     Route: 048
     Dates: start: 20190817, end: 20190910

REACTIONS (5)
  - Depression [None]
  - Product substitution issue [None]
  - Impaired work ability [None]
  - Irritability [None]
  - Pain [None]

NARRATIVE: CASE EVENT DATE: 20190819
